APPROVED DRUG PRODUCT: PROGESTERONE
Active Ingredient: PROGESTERONE
Strength: 50MG/ML
Dosage Form/Route: INJECTABLE;INJECTION
Application: A217707 | Product #001
Applicant: ACCORD HEALTHCARE INC
Approved: Nov 21, 2023 | RLD: No | RS: No | Type: DISCN